FAERS Safety Report 17317879 (Version 1)
Quarter: 2020Q1

REPORT INFORMATION
  Report Type: Report from Study
  Country: US (occurrence: US)
  Receive Date: 20200124
  Receipt Date: 20200124
  Transmission Date: 20200409
  Serious: Yes (Hospitalization)
  Sender: FDA-Public Use
  Company Number: US-TAIHO ONCOLOGY  INC-EU-2019-03571

PATIENT
  Age: 77 Year
  Sex: Male

DRUGS (11)
  1. PRENATAL TABLET [Concomitant]
     Active Substance: VITAMINS
  2. METOPROL TAR [Concomitant]
     Dosage: NI
  3. OMEPRAZOLE. [Concomitant]
     Active Substance: OMEPRAZOLE
     Dosage: NI
  4. PIOGLITAZONE. [Concomitant]
     Active Substance: PIOGLITAZONE
     Dosage: NI
  5. CLONIDINE. [Concomitant]
     Active Substance: CLONIDINE
  6. METHIMAZOLE. [Concomitant]
     Active Substance: METHIMAZOLE
     Dosage: NI
  7. DILTIAZEM. [Concomitant]
     Active Substance: DILTIAZEM
  8. GLIMEPIRIDE. [Concomitant]
     Active Substance: GLIMEPIRIDE
  9. LONSURF [Suspect]
     Active Substance: TIPIRACIL HYDROCHLORIDE\TRIFLURIDINE
     Indication: RECTAL CANCER
     Dosage: LONSURF INTERRUPTED ON AN UNSPECIFIED DATE IN 2019 FOR 5 WEEKS AND RESTARTED ON 28/OCT/2019.?CURRENT
     Route: 048
     Dates: start: 20190722
  10. HYDRALAZINE [Concomitant]
     Active Substance: HYDRALAZINE HYDROCHLORIDE
  11. LOSARTAN/HCT [Concomitant]
     Active Substance: HYDROCHLOROTHIAZIDE\LOSARTAN POTASSIUM
     Dosage: 100- 12.5

REACTIONS (5)
  - Neutropenia [Recovered/Resolved]
  - Cerebrovascular accident [Unknown]
  - Radiotherapy [Recovered/Resolved]
  - Cytopenia [Unknown]
  - Asthenia [Unknown]

NARRATIVE: CASE EVENT DATE: 201909
